FAERS Safety Report 8107551-7 (Version None)
Quarter: 2012Q1

REPORT INFORMATION
  Report Type: 
  Country: None (occurrence: None)
  Receive Date: 20120202
  Receipt Date: 20120120
  Transmission Date: 20120608
  Serious: Yes (Hospitalization)
  Sender: FDA-Public Use
  Company Number: FI-ROCHE-1032633

PATIENT
  Sex: Female

DRUGS (3)
  1. FEMARA [Concomitant]
  2. LAPATINIB [Concomitant]
     Indication: BREAST CANCER
  3. XELODA [Suspect]
     Indication: BREAST CANCER
     Dosage: 3 TO 4 TABLETS.
     Route: 048
     Dates: end: 20111216

REACTIONS (10)
  - EPISTAXIS [None]
  - SKIN DISORDER [None]
  - THROMBOCYTOPENIA [None]
  - HYPONATRAEMIA [None]
  - RHINITIS [None]
  - VAGINAL DISORDER [None]
  - DIARRHOEA HAEMORRHAGIC [None]
  - FATIGUE [None]
  - DIARRHOEA [None]
  - GASTROINTESTINAL MUCOSAL DISORDER [None]
